FAERS Safety Report 5615579-1 (Version None)
Quarter: 2008Q1

REPORT INFORMATION
  Report Type: 
  Country: None (occurrence: None)
  Receive Date: 20080206
  Receipt Date: 20080125
  Transmission Date: 20080703
  Serious: Yes (Death, Hospitalization)
  Sender: FDA-Public Use
  Company Number: US-JNJFOC-20080106538

PATIENT
  Age: 9 Month
  Sex: Male

DRUGS (2)
  1. TYLENOL (CAPLET) [Suspect]
  2. TYLENOL (CAPLET) [Suspect]
     Indication: RESPIRATORY TRACT INFECTION

REACTIONS (2)
  - ACCIDENTAL OVERDOSE [None]
  - HEPATIC FAILURE [None]
